FAERS Safety Report 10225171 (Version 1)
Quarter: 2014Q2

REPORT INFORMATION
  Report Type: Spontaneous
  Country: US (occurrence: US)
  Receive Date: 20140609
  Receipt Date: 20140609
  Transmission Date: 20141212
  Serious: Yes (Disabling)
  Sender: FDA-Public Use
  Company Number: US-ROCHE-1413048

PATIENT
  Sex: Female

DRUGS (12)
  1. XELODA [Suspect]
     Indication: BREAST CANCER METASTATIC
     Route: 065
     Dates: start: 20101112
  2. HERCEPTIN [Suspect]
     Indication: BREAST CANCER METASTATIC
     Route: 065
  3. TYKERB [Suspect]
     Indication: BREAST CANCER METASTATIC
     Route: 065
     Dates: start: 20101112
  4. AROMASIN [Suspect]
     Indication: BREAST CANCER METASTATIC
     Route: 065
  5. VITAMIN C [Concomitant]
     Route: 042
  6. NEURONTIN (UNITED STATES) [Concomitant]
  7. ATIVAN [Concomitant]
  8. DEXTROSE [Concomitant]
     Route: 065
  9. HYDROXYZINE HCL [Concomitant]
  10. HYDROXYZINE PAMOATE [Concomitant]
  11. SALINE FLUSH 0.9% [Concomitant]
  12. BENICAR HCT [Concomitant]

REACTIONS (21)
  - Palmar-plantar erythrodysaesthesia syndrome [Recovered/Resolved]
  - Joint stiffness [Unknown]
  - Neuropathy peripheral [Not Recovered/Not Resolved]
  - Anxiety [Unknown]
  - Insomnia [Unknown]
  - Dry eye [Unknown]
  - Cataract [Unknown]
  - Weight decreased [Unknown]
  - Splenic rupture [Unknown]
  - Gastrointestinal injury [Unknown]
  - Skin irritation [Unknown]
  - Fracture [Unknown]
  - Musculoskeletal disorder [Unknown]
  - Cough [Unknown]
  - Hyperaesthesia [Unknown]
  - Pain [Unknown]
  - Skin mass [Recovered/Resolved]
  - Visual acuity reduced [Unknown]
  - Hyperaesthesia [Unknown]
  - Fat necrosis [Recovered/Resolved]
  - Gastrointestinal injury [Unknown]
